FAERS Safety Report 23671160 (Version 2)
Quarter: 2024Q2

REPORT INFORMATION
  Report Type: Spontaneous
  Country: JP (occurrence: JP)
  Receive Date: 20240326
  Receipt Date: 20240517
  Transmission Date: 20240715
  Serious: Yes (Death, Hospitalization, Other)
  Sender: FDA-Public Use
  Company Number: JP-CHUGAI-2024008226

PATIENT
  Age: 77 Year
  Sex: Female
  Weight: 45.2 kg

DRUGS (17)
  1. AVASTIN [Suspect]
     Active Substance: BEVACIZUMAB
     Indication: Ovarian cancer
     Route: 065
     Dates: start: 20221122, end: 20240109
  2. AVASTIN [Suspect]
     Active Substance: BEVACIZUMAB
     Indication: Metastases to bone
  3. LOXOPROFEN SODIUM DIHYDRATE [Suspect]
     Active Substance: LOXOPROFEN SODIUM DIHYDRATE
     Indication: Pain
     Route: 048
     Dates: start: 20221102, end: 20240131
  4. PACLITAXEL [Concomitant]
     Active Substance: PACLITAXEL
     Indication: Ovarian cancer
     Dosage: UNK
     Dates: start: 20221122, end: 20230512
  5. PACLITAXEL [Concomitant]
     Active Substance: PACLITAXEL
     Indication: Metastases to bone
  6. CARBOPLATIN [Concomitant]
     Active Substance: CARBOPLATIN
     Indication: Ovarian cancer
     Dosage: UNK
     Dates: start: 20221122, end: 20230512
  7. CARBOPLATIN [Concomitant]
     Active Substance: CARBOPLATIN
     Indication: Metastases to bone
  8. DOXORUBICIN HYDROCHLORIDE [Concomitant]
     Active Substance: DOXORUBICIN HYDROCHLORIDE
     Indication: Metastases to bone
     Dosage: UNK
     Dates: start: 20231205, end: 20240109
  9. REBAMIPIDE [Concomitant]
     Active Substance: REBAMIPIDE
     Dosage: 100 MILLIGRAM, TID
     Dates: start: 20221102, end: 20240131
  10. MAGNESIUM OXIDE [Concomitant]
     Active Substance: MAGNESIUM OXIDE
     Dosage: 330 MILLIGRAM, TID
     Dates: start: 20221116, end: 20240131
  11. SYMPROIC [Concomitant]
     Active Substance: NALDEMEDINE
     Dosage: 0.2 MILLIGRAM, QD
     Dates: start: 20221116, end: 20240131
  12. FERROUS CITRATE [Concomitant]
     Active Substance: FERROUS CITRATE
     Dosage: 50 MILLIGRAM, BID
     Dates: start: 20230621, end: 20240131
  13. VONOPRAZAN FUMARATE [Concomitant]
     Active Substance: VONOPRAZAN FUMARATE
     Dosage: 10 MILLIGRAM, QD
     Dates: start: 20230809, end: 20240131
  14. HYDROMORPHONE HYDROCHLORIDE [Concomitant]
     Active Substance: HYDROMORPHONE HYDROCHLORIDE
     Dosage: 2 MILLIGRAM, QD
     Dates: start: 20221116, end: 20240131
  15. AMLODIPINE BESYLATE\ATORVASTATIN CALCIUM [Concomitant]
     Active Substance: AMLODIPINE BESYLATE\ATORVASTATIN CALCIUM
     Dosage: 1 DOSAGE FORM, QD
     Dates: end: 20240131
  16. HEPARINOID [Concomitant]
     Dosage: ONCE TO A FEW TIMES DAILY, LEG
     Dates: start: 20231205, end: 20240131
  17. SENNOSIDES A AND B [Concomitant]
     Active Substance: SENNOSIDES A AND B
     Indication: Constipation
     Dosage: 24 MG, AT THE OCCURRENCE OF CONSTIPATION
     Route: 048
     Dates: start: 20230125, end: 20240131

REACTIONS (12)
  - Small intestinal perforation [Fatal]
  - Peritonitis [Unknown]
  - Disseminated intravascular coagulation [Unknown]
  - Multiple organ dysfunction syndrome [Unknown]
  - Febrile neutropenia [Unknown]
  - Cardiac failure [Unknown]
  - Sepsis [Unknown]
  - Metastases to bone [Unknown]
  - Stress cardiomyopathy [Unknown]
  - Wound haemorrhage [Unknown]
  - Abscess [Unknown]
  - Constipation [Unknown]

NARRATIVE: CASE EVENT DATE: 20231205
